FAERS Safety Report 16361684 (Version 1)
Quarter: 2019Q2

REPORT INFORMATION
  Report Type: Spontaneous
  Country: ES (occurrence: ES)
  Receive Date: 20190528
  Receipt Date: 20190528
  Transmission Date: 20190711
  Serious: Yes (Disabling)
  Sender: FDA-Public Use
  Company Number: ES-BAUSCH-BL-2019-015094

PATIENT
  Sex: Male

DRUGS (3)
  1. ZERBAXA [Suspect]
     Active Substance: CEFTOLOZANE SULFATE\TAZOBACTAM SODIUM
     Indication: PSEUDOMONAS INFECTION
     Route: 065
     Dates: start: 201903, end: 201903
  2. ZERBAXA [Suspect]
     Active Substance: CEFTOLOZANE SULFATE\TAZOBACTAM SODIUM
     Indication: DIABETIC FOOT
     Route: 065
  3. GENTAMICIN. [Suspect]
     Active Substance: GENTAMICIN
     Indication: PSEUDOMONAS INFECTION
     Route: 065
     Dates: start: 201903, end: 201903

REACTIONS (3)
  - Product use in unapproved indication [Unknown]
  - Nephropathy toxic [Recovered/Resolved]
  - Leg amputation [Unknown]

NARRATIVE: CASE EVENT DATE: 201903
